FAERS Safety Report 6429611-9 (Version None)
Quarter: 2009Q4

REPORT INFORMATION
  Report Type: 
  Country: None (occurrence: None)
  Receive Date: 20091103
  Receipt Date: 20091019
  Transmission Date: 20100525
  Serious: Yes (Hospitalization)
  Sender: FDA-Public Use
  Company Number: 02100-JPN-06-0296

PATIENT

DRUGS (6)
  1. PLETAL [Suspect]
     Indication: CEREBRAL INFARCTION
     Dosage: 100 MG, BID ORAL ; 100 MG, BID; ORAL ; 100 MG, BID; ORAL
     Route: 048
     Dates: start: 20041116, end: 20060614
  2. PLETAL [Suspect]
     Indication: CEREBRAL INFARCTION
     Dosage: 100 MG, BID ORAL ; 100 MG, BID; ORAL ; 100 MG, BID; ORAL
     Route: 048
     Dates: start: 20060625, end: 20060705
  3. PLETAL [Suspect]
     Indication: CEREBRAL INFARCTION
     Dosage: 100 MG, BID ORAL ; 100 MG, BID; ORAL ; 100 MG, BID; ORAL
     Route: 048
     Dates: start: 20060713
  4. FAMOTIDINE [Concomitant]
  5. LIPITOR [Concomitant]
  6. CERNILTON (CERNITIN T60, CERNITIN GBX) [Concomitant]

REACTIONS (3)
  - COLONIC POLYP [None]
  - CONDITION AGGRAVATED [None]
  - LARGE INTESTINAL HAEMORRHAGE [None]
